FAERS Safety Report 8765888 (Version 2)
Quarter: 2013Q4

REPORT INFORMATION
  Report Type: Spontaneous
  Country: US (occurrence: US)
  Receive Date: 20120904
  Receipt Date: 20131101
  Transmission Date: 20140711
  Serious: No
  Sender: FDA-Public Use
  Company Number: US-009507513-1209USA000356

PATIENT
  Age: 59 Year
  Sex: Male

DRUGS (9)
  1. PEG-INTRON [Suspect]
     Indication: HEPATITIS C
     Dosage: 120MCG PER 0.5 ML, QW
     Route: 058
     Dates: start: 20120523
  2. RIBASPHERE [Suspect]
     Dosage: 600 MG IN THE MORNING AND 400 MG IN THE EVENING
  3. METFORMIN [Concomitant]
     Dosage: 500 UNK, UNK
  4. VITAMINS (UNSPECIFIED) [Concomitant]
     Dosage: UNK, QD
  5. CALCIUM (UNSPECIFIED) [Concomitant]
     Dosage: 500 MG, QD
  6. ASPIRIN [Concomitant]
     Dosage: 81 MG, QD
  7. OMEGA-3 MARINE TRIGLYCERIDES [Concomitant]
     Dosage: 1000 MG, QD
  8. CYANOCOBALAMIN [Concomitant]
     Dosage: 100 MICROGRAM, QD
  9. VITAMIN E [Concomitant]
     Dosage: 400 UNIT DAILY

REACTIONS (6)
  - Insomnia [Not Recovered/Not Resolved]
  - Blister [Not Recovered/Not Resolved]
  - Rash pustular [Not Recovered/Not Resolved]
  - Rash [Not Recovered/Not Resolved]
  - Urticaria [Not Recovered/Not Resolved]
  - Pruritus [Not Recovered/Not Resolved]
